FAERS Safety Report 6881438-X (Version None)
Quarter: 2010Q3

REPORT INFORMATION
  Report Type: 
  Country: None (occurrence: None)
  Receive Date: 20100728
  Receipt Date: 20100728
  Transmission Date: 20110219
  Serious: Yes (Life-Threatening, Hospitalization, Disabling, Other)
  Sender: FDA-Public Use
  Company Number: None

PATIENT
  Age: 50 Year
  Sex: Female
  Weight: 58.9676 kg

DRUGS (1)
  1. ADDERALL 10 [Suspect]
     Dates: start: 20100617, end: 20100624

REACTIONS (13)
  - BALANCE DISORDER [None]
  - CRYING [None]
  - DECREASED APPETITE [None]
  - DEHYDRATION [None]
  - DELIRIUM [None]
  - DRUG INTERACTION [None]
  - DRUG TOXICITY [None]
  - HALLUCINATIONS, MIXED [None]
  - INCOHERENT [None]
  - NAUSEA [None]
  - SUICIDAL IDEATION [None]
  - TREMOR [None]
  - UNRESPONSIVE TO STIMULI [None]
